FAERS Safety Report 21683034 (Version 1)
Quarter: 2022Q4

REPORT INFORMATION
  Report Type: Spontaneous
  Country: FR (occurrence: FR)
  Receive Date: 20221205
  Receipt Date: 20221205
  Transmission Date: 20230112
  Serious: Yes (Death)
  Sender: FDA-Public Use
  Company Number: None

PATIENT
  Age: 61 Year
  Sex: Male
  Weight: 116 kg

DRUGS (4)
  1. ETOPOSIDE [Suspect]
     Active Substance: ETOPOSIDE
     Indication: Neuroendocrine carcinoma metastatic
     Dosage: 240 MILLIGRAM, QD
     Route: 042
     Dates: start: 20220824, end: 20220824
  2. METHYLPREDNISOLONE [Suspect]
     Active Substance: METHYLPREDNISOLONE
     Indication: Premedication
     Dosage: 60 MILLIGRAM
     Route: 042
     Dates: start: 20220824
  3. GRANISETRON HYDROCHLORIDE [Suspect]
     Active Substance: GRANISETRON HYDROCHLORIDE
     Indication: Premedication
     Dosage: 3 MILLIGRAM
     Route: 042
     Dates: start: 20220824
  4. IMFINZI [Suspect]
     Active Substance: DURVALUMAB
     Indication: Neuroendocrine carcinoma metastatic
     Dosage: 1500 MILLIGRAM
     Route: 042
     Dates: start: 20220824, end: 20220824

REACTIONS (2)
  - Pyrexia [Fatal]
  - Coma [Fatal]

NARRATIVE: CASE EVENT DATE: 20220824
